FAERS Safety Report 5468074-7 (Version None)
Quarter: 2007Q3

REPORT INFORMATION
  Report Type: 
  Country: None (occurrence: None)
  Receive Date: 20070912
  Receipt Date: 20070829
  Transmission Date: 20080115
  Serious: Yes (Hospitalization)
  Sender: FDA-Public Use
  Company Number: WSDF_00670

PATIENT
  Age: 4 Year
  Sex: Female

DRUGS (1)
  1. WINRHO SDF [Suspect]
     Indication: IDIOPATHIC THROMBOCYTOPENIC PURPURA
     Dates: start: 20070813, end: 20070813

REACTIONS (8)
  - DEPRESSED LEVEL OF CONSCIOUSNESS [None]
  - DIALYSIS [None]
  - HAEMOLYSIS [None]
  - HEPATOCELLULAR DAMAGE [None]
  - JAUNDICE [None]
  - PAIN [None]
  - RENAL FAILURE [None]
  - TREMOR [None]
